FAERS Safety Report 18933670 (Version 2)
Quarter: 2021Q1

REPORT INFORMATION
  Report Type: Spontaneous
  Country: BR (occurrence: BR)
  Receive Date: 20210224
  Receipt Date: 20210305
  Transmission Date: 20210420
  Serious: Yes (Hospitalization, Other)
  Sender: FDA-Public Use
  Company Number: BR-PFIZER INC-2003029609

PATIENT
  Age: 20 Year
  Sex: Male

DRUGS (3)
  1. BLEOMYCIN SULFATE [Suspect]
     Active Substance: BLEOMYCIN SULFATE
     Indication: TESTICULAR GERM CELL CANCER
     Dosage: 30 IU, CYCLIC, WEEKLY
     Route: 065
     Dates: start: 1999
  2. ETOPOSIDE. [Suspect]
     Active Substance: ETOPOSIDE
     Indication: TESTICULAR GERM CELL CANCER
     Dosage: 100 MG/M2, CYCLIC (5 DAYS, EVERY 3 WEEKS)
     Route: 065
     Dates: start: 1999
  3. CISPLATIN. [Suspect]
     Active Substance: CISPLATIN
     Indication: TESTICULAR GERM CELL CANCER
     Dosage: 20 MG/M2, CYCLIC (5 DAYS, EVERY 3 WEEKS)
     Route: 042
     Dates: start: 1999

REACTIONS (2)
  - Ischaemic stroke [Recovering/Resolving]
  - Off label use [Unknown]

NARRATIVE: CASE EVENT DATE: 1999
